FAERS Safety Report 10794007 (Version 3)
Quarter: 2016Q1

REPORT INFORMATION
  Report Type: Spontaneous
  Country: US (occurrence: US)
  Receive Date: 20150213
  Receipt Date: 20160128
  Transmission Date: 20160525
  Serious: Yes (Hospitalization, Other)
  Sender: FDA-Public Use
  Company Number: US-BAYER-2015-021953

PATIENT
  Age: 26 Year
  Sex: Female
  Weight: 109.75 kg

DRUGS (17)
  1. FERROUS SULFATE [Concomitant]
     Active Substance: FERROUS SULFATE\FERROUS SULFATE, DRIED
     Dosage: 324 MG, BID
     Route: 048
  2. NORTRIPTYLINE [Concomitant]
     Active Substance: NORTRIPTYLINE
  3. MIRENA [Suspect]
     Active Substance: LEVONORGESTREL
     Indication: CONTRACEPTION
     Dosage: 20 MCG/24HR, CONT
     Route: 015
     Dates: start: 20070607, end: 20120531
  4. TERAZOL [Concomitant]
     Active Substance: TERCONAZOLE
  5. FLAGYL [Concomitant]
     Active Substance: METRONIDAZOLE\METRONIDAZOLE HYDROCHLORIDE
     Dosage: 500 MG, BID
     Route: 048
  6. DEPO-PROVERA [Concomitant]
     Active Substance: MEDROXYPROGESTERONE ACETATE
     Indication: CONTRACEPTION
     Dosage: 150 MG/ML, UNK
     Route: 030
  7. PRENATAL VITAMINS [Concomitant]
     Active Substance: VITAMINS
     Dosage: UNK UNK, QD
     Route: 048
  8. MIRENA [Suspect]
     Active Substance: LEVONORGESTREL
     Indication: CONTRACEPTION
     Dosage: 20 MCG/24HR, CONT
     Route: 015
     Dates: start: 20070330, end: 20070607
  9. AMPICILLIN [Concomitant]
     Active Substance: AMPICILLIN
  10. NICOTINE POLACRILEX [Concomitant]
     Active Substance: NICOTINE
  11. CLARITIN [Concomitant]
     Active Substance: LORATADINE
  12. AMOXICILLIN. [Concomitant]
     Active Substance: AMOXICILLIN
  13. METROGEL [Concomitant]
     Active Substance: METRONIDAZOLE
  14. MIRENA [Suspect]
     Active Substance: LEVONORGESTREL
     Indication: CONTRACEPTION
     Dosage: 20 MCG/24HR, CONT
     Route: 015
     Dates: start: 20120531
  15. CLEOCIN [Concomitant]
     Active Substance: CLINDAMYCIN PHOSPHATE
  16. PERCOCET [Concomitant]
     Active Substance: ACETAMINOPHEN\OXYCODONE HYDROCHLORIDE
  17. DOXYCYCLINE. [Concomitant]
     Active Substance: DOXYCYCLINE

REACTIONS (7)
  - Device dislocation [None]
  - Injury [None]
  - Device difficult to use [None]
  - Embedded device [None]
  - Pain [None]
  - Pelvic inflammatory disease [None]
  - Abdominal pain lower [None]

NARRATIVE: CASE EVENT DATE: 200706
